FAERS Safety Report 8205377-7 (Version None)
Quarter: 2012Q1

REPORT INFORMATION
  Report Type: 
  Country: None (occurrence: None)
  Receive Date: 20120313
  Receipt Date: 20120227
  Transmission Date: 20120608
  Serious: Yes (Other)
  Sender: FDA-Public Use
  Company Number: US-ARROW GEN-2012-03735

PATIENT
  Age: 22 Year
  Sex: Female

DRUGS (7)
  1. FLUCONAZOLE [Suspect]
     Indication: MENINGITIS CRYPTOCOCCAL
     Dosage: 200 MG, DAILY
     Route: 065
  2. TACROLIMUS [Suspect]
     Indication: IMMUNOSUPPRESSION
     Route: 065
  3. ORTHOCLONE OKT3 [Suspect]
  4. AMPHOTERICIN B [Suspect]
  5. MYCOPHENOLATE MEFETIL [Suspect]
     Indication: IMMUNOSUPPRESSION
     Route: 065
  6. PREDNISONE TAB [Suspect]
     Indication: IMMUNOSUPPRESSION
     Route: 065
  7. FLUCYTOSINE [Suspect]

REACTIONS (2)
  - MENINGITIS CRYPTOCOCCAL [None]
  - IMMUNE RECONSTITUTION SYNDROME [None]
